FAERS Safety Report 9908532 (Version 1)
Quarter: 2014Q1

REPORT INFORMATION
  Report Type: Spontaneous
  Country: US (occurrence: None)
  Receive Date: 20140212
  Receipt Date: 20140212
  Transmission Date: 20141002
  Serious: Yes (Hospitalization)
  Sender: FDA-Public Use
  Company Number: None

PATIENT
  Age: 62 Year
  Sex: Female
  Weight: 49.5 kg

DRUGS (1)
  1. HYDROMORPHONE [Suspect]
     Indication: NEOPLASM MALIGNANT
     Dosage: 20 MG  OTHER  PO
     Route: 048
     Dates: start: 20130917, end: 20131011

REACTIONS (6)
  - Fatigue [None]
  - Somnolence [None]
  - Dyspnoea [None]
  - Breath sounds abnormal [None]
  - Night sweats [None]
  - Condition aggravated [None]
